FAERS Safety Report 6106234-2 (Version None)
Quarter: 2009Q1

REPORT INFORMATION
  Report Type: 
  Country: None (occurrence: None)
  Receive Date: 20090306
  Receipt Date: 20090303
  Transmission Date: 20090719
  Serious: Yes (Death)
  Sender: FDA-Public Use
  Company Number: US-ABBOTT-09P-163-0560144-00

PATIENT
  Sex: Male
  Weight: 99.88 kg

DRUGS (19)
  1. ZEMPLAR [Suspect]
     Indication: RENAL DISORDER
     Route: 048
  2. FISH OIL [Concomitant]
     Indication: BLOOD CHOLESTEROL INCREASED
     Route: 048
  3. CARVEDILOL [Concomitant]
     Indication: CARDIAC DISORDER
     Route: 048
  4. KLOR-CON [Concomitant]
     Indication: BLOOD POTASSIUM DECREASED
     Route: 048
  5. ISOSORBIDE MONONITRATE [Concomitant]
     Indication: CARDIAC DISORDER
     Route: 048
  6. METOCLOPRAMIDE HYDROCHLORIDE [Concomitant]
     Indication: NAUSEA
     Route: 048
  7. FUROSEMIDE [Concomitant]
     Indication: FLUID IMBALANCE
     Route: 048
  8. PACERONE [Concomitant]
     Indication: CARDIAC DISORDER
  9. WARFARIN SODIUM [Concomitant]
     Indication: THROMBOSIS
     Dosage: 3 MG OR 4 MG
     Route: 048
  10. NIASPAN [Concomitant]
     Indication: BLOOD CHOLESTEROL INCREASED
     Route: 048
  11. VYTORIN [Concomitant]
     Indication: BLOOD CHOLESTEROL INCREASED
     Dosage: 10/40 MG PER DAY
  12. ASPIRIN [Concomitant]
     Indication: DRUG USE FOR UNKNOWN INDICATION
     Route: 048
  13. SPIRONOLACTONE [Concomitant]
     Indication: DRUG USE FOR UNKNOWN INDICATION
     Route: 048
  14. ALLOPURINOL [Concomitant]
     Indication: GOUT
     Route: 048
  15. COLCHICINE [Concomitant]
     Indication: GOUT
  16. METOLAZONE [Concomitant]
     Indication: FLUID IMBALANCE
     Route: 048
  17. ZOLOPIDEN [Concomitant]
     Indication: INSOMNIA
     Route: 048
  18. NITRO-SPRAY [Concomitant]
     Indication: DRUG USE FOR UNKNOWN INDICATION
  19. APIDRA INSULIN PUMP [Concomitant]
     Indication: TYPE 2 DIABETES MELLITUS

REACTIONS (4)
  - DIABETES MELLITUS [None]
  - INFLUENZA LIKE ILLNESS [None]
  - ISCHAEMIC CARDIOMYOPATHY [None]
  - SUDDEN DEATH [None]
